FAERS Safety Report 9953350 (Version 1)
Quarter: 2014Q1

REPORT INFORMATION
  Report Type: Report from Study
  Country: US (occurrence: US)
  Receive Date: 20140304
  Receipt Date: 20140304
  Transmission Date: 20141002
  Serious: No
  Sender: FDA-Public Use
  Company Number: US-ABBVIE-13P-163-1072116-00

PATIENT
  Age: 83 Year
  Sex: Male

DRUGS (6)
  1. HUMIRA [Suspect]
     Indication: RHEUMATOID ARTHRITIS
     Dates: start: 20130213
  2. MVI [Concomitant]
     Indication: PRODUCT USED FOR UNKNOWN INDICATION
     Dosage: DAILY
  3. HCTZ [Concomitant]
     Indication: HYPERTENSION
     Dosage: DAILY
  4. PREDNISONE [Concomitant]
     Indication: HYPERTENSION
  5. LEUCOVOR [Concomitant]
     Indication: ORAL HERPES
  6. CARVEDILOL [Concomitant]
     Indication: HYPERTENSION
     Dosage: DAILY

REACTIONS (1)
  - Melanocytic naevus [Not Recovered/Not Resolved]
